FAERS Safety Report 6347298-0 (Version None)
Quarter: 2009Q3

REPORT INFORMATION
  Report Type: 
  Country: None (occurrence: None)
  Receive Date: 20090910
  Receipt Date: 20090831
  Transmission Date: 20100115
  Serious: Yes (Other)
  Sender: FDA-Public Use
  Company Number: PHHY2009IT37127

PATIENT
  Sex: Female

DRUGS (2)
  1. ZOMETA [Suspect]
     Indication: BREAST CANCER
     Dosage: 4 MG, QMO
     Route: 042
     Dates: start: 20050101, end: 20060831
  2. FEMARA [Concomitant]
     Dosage: UNK
     Dates: start: 20010101, end: 20061231

REACTIONS (1)
  - OSTEONECROSIS [None]
